FAERS Safety Report 5832690-0 (Version None)
Quarter: 2008Q3

REPORT INFORMATION
  Report Type: 
  Country: None (occurrence: None)
  Receive Date: 20080804
  Receipt Date: 20080720
  Transmission Date: 20090109
  Serious: Yes (Hospitalization)
  Sender: FDA-Public Use
  Company Number: IL-GENENTECH-229716

PATIENT
  Sex: Female
  Weight: 45 kg

DRUGS (8)
  1. BEVACIZUMAB [Suspect]
     Indication: COLON CANCER
     Dosage: 315 MG, Q3W
     Route: 042
     Dates: start: 20051222, end: 20060830
  2. CAPECITABINE [Suspect]
     Indication: COLON CANCER
     Dosage: 2000 MG/M2, UNK
     Route: 048
     Dates: start: 20051222, end: 20060531
  3. OXALIPLATIN [Suspect]
     Indication: COLON CANCER
     Dosage: 140 MG, Q3W
     Route: 042
     Dates: end: 20060517
  4. PERCOCET [Concomitant]
     Indication: DRUG USE FOR UNKNOWN INDICATION
     Dosage: UNK
     Dates: start: 20060621, end: 20060628
  5. ORACORT [Concomitant]
     Indication: DRUG USE FOR UNKNOWN INDICATION
     Dosage: UNK
     Dates: start: 20060621, end: 20060628
  6. LACTULOSE [Concomitant]
     Indication: DRUG USE FOR UNKNOWN INDICATION
     Dosage: UNK
     Dates: start: 20060621, end: 20060628
  7. ACAMOL [Concomitant]
     Indication: DRUG USE FOR UNKNOWN INDICATION
     Dosage: UNK
     Dates: start: 20060509, end: 20060510
  8. MEDICATION (UNK INGREDIENT) [Concomitant]
     Indication: DRUG USE FOR UNKNOWN INDICATION
     Dosage: UNK
     Dates: start: 20060509, end: 20060511

REACTIONS (1)
  - CROHN'S DISEASE [None]
